FAERS Safety Report 8926555 (Version 1)
Quarter: 2012Q4

REPORT INFORMATION
  Report Type: 
  Country: US (occurrence: US)
  Receive Date: 20121127
  Receipt Date: 20121127
  Transmission Date: 20130627
  Serious: No
  Sender: FDA-Public Use
  Company Number: US-BAYER-2012-123962

PATIENT
  Age: 69 Year
  Sex: Female
  Weight: 62.59 kg

DRUGS (16)
  1. ALEVE CAPLET/TABLET,MIDOL EXTENDED RELIEF CAPLET [Suspect]
     Indication: PAIN RELIEF
     Dosage: 1 DF, BID
     Route: 048
     Dates: start: 20121110, end: 20121118
  2. METFORMIN [Concomitant]
  3. GABAPENTIN [Concomitant]
  4. LABETALOL [Concomitant]
  5. MACROBID [Concomitant]
  6. DICYCLOMINE [Concomitant]
  7. RANITIDINE [Concomitant]
  8. PREVACID [Concomitant]
  9. NIASPAN [Concomitant]
  10. FUROSEMIDE [Concomitant]
  11. LISINOPRIL/HYDROCHLOROTHIAZIDE [Concomitant]
  12. TRIMETHOPRIM [Concomitant]
  13. TEGRETOL [Concomitant]
  14. ATENOLOL [Concomitant]
  15. BACLOFEN [Concomitant]
  16. CENTRUM SILVER [Concomitant]

REACTIONS (2)
  - Nausea [Not Recovered/Not Resolved]
  - Vomiting [Recovered/Resolved]
